FAERS Safety Report 18676138 (Version 1)
Quarter: 2020Q4

REPORT INFORMATION
  Report Type: Spontaneous
  Country: US (occurrence: US)
  Receive Date: 20201228
  Receipt Date: 20201228
  Transmission Date: 20210114
  Serious: No
  Sender: FDA-Public Use
  Company Number: None

PATIENT
  Sex: Male

DRUGS (1)
  1. SUTENT [Suspect]
     Active Substance: SUNITINIB MALATE
     Indication: GASTRIC NEOPLASM
     Route: 048
     Dates: start: 20200819

REACTIONS (3)
  - Blister [None]
  - Peripheral swelling [None]
  - Condition aggravated [None]
